FAERS Safety Report 18526896 (Version 2)
Quarter: 2021Q1

REPORT INFORMATION
  Report Type: Spontaneous
  Country: CZ (occurrence: CZ)
  Receive Date: 20201120
  Receipt Date: 20210222
  Transmission Date: 20210419
  Serious: Yes (Other)
  Sender: FDA-Public Use
  Company Number: CZ-BAUSCH-BL-2020-033090

PATIENT
  Age: 60 Year
  Sex: Male

DRUGS (11)
  1. DOXYCYCLINE. [Concomitant]
     Active Substance: DOXYCYCLINE
     Indication: RECTOSIGMOID CANCER
     Route: 065
  2. OXALIPLATIN. [Suspect]
     Active Substance: OXALIPLATIN
     Dosage: CYCLIC (REDUCED BY 50%)
     Route: 065
  3. CALCIUM FOLINATE [Suspect]
     Active Substance: LEUCOVORIN CALCIUM
     Indication: RECTOSIGMOID CANCER
     Dosage: CYCLIC
     Route: 065
  4. BELOGENT [Suspect]
     Active Substance: BETAMETHASONE DIPROPIONATE\GENTAMICIN SULFATE
     Indication: SKIN REACTION
     Route: 065
  5. FLUOROURACIL. [Suspect]
     Active Substance: FLUOROURACIL
     Indication: RECTOSIGMOID CANCER
     Dosage: END DATE ? AFTER 41 CYCLES
     Route: 065
  6. FOLINIC ACID [Suspect]
     Active Substance: LEUCOVORIN
     Indication: RECTOSIGMOID CANCER
     Dosage: END DATE ? AFTER 41 CYCLES
     Route: 065
  7. OXALIPLATIN. [Suspect]
     Active Substance: OXALIPLATIN
     Indication: RECTOSIGMOID CANCER
     Dosage: AFTER 36 CYCLES
     Route: 065
  8. HEPARIN [Concomitant]
     Active Substance: HEPARIN SODIUM
     Indication: PULMONARY EMBOLISM
     Route: 065
  9. ROZEX (METRONIDAZOLE) [Concomitant]
     Active Substance: METRONIDAZOLE
     Indication: SKIN REACTION
     Route: 065
  10. MAGNESIUM [Concomitant]
     Active Substance: MAGNESIUM
     Indication: RECTOSIGMOID CANCER
     Route: 065
  11. PANITUMUMAB [Concomitant]
     Active Substance: PANITUMUMAB
     Indication: RECTOSIGMOID CANCER
     Route: 065

REACTIONS (6)
  - Skin reaction [Recovered/Resolved]
  - Drug intolerance [Unknown]
  - Neutropenia [Unknown]
  - Hypomagnesaemia [Unknown]
  - Erythema [Recovering/Resolving]
  - Pulmonary embolism [Recovered/Resolved]
